FAERS Safety Report 14474188 (Version 1)
Quarter: 2018Q1

REPORT INFORMATION
  Report Type: Spontaneous
  Country: US (occurrence: US)
  Receive Date: 20180131
  Receipt Date: 20180131
  Transmission Date: 20180509
  Serious: Yes (Life-Threatening, Hospitalization)
  Sender: FDA-Public Use
  Company Number: None

PATIENT
  Age: 59 Year
  Sex: Male

DRUGS (1)
  1. BUPROPION. [Suspect]
     Active Substance: BUPROPION
     Indication: DEPRESSION
     Dates: start: 20171207, end: 20171207

REACTIONS (7)
  - Abdominal pain [None]
  - Suicide attempt [None]
  - Nausea [None]
  - Incorrect route of drug administration [None]
  - Vomiting [None]
  - Dysuria [None]
  - Alcohol use [None]

NARRATIVE: CASE EVENT DATE: 20171207
